FAERS Safety Report 9858277 (Version 3)
Quarter: 2014Q2

REPORT INFORMATION
  Report Type: Report from Study
  Country: CA (occurrence: CA)
  Receive Date: 20140131
  Receipt Date: 20140429
  Transmission Date: 20141212
  Serious: Yes (Hospitalization, Other)
  Sender: FDA-Public Use
  Company Number: CA-JNJFOC-20140116094

PATIENT
  Sex: Male
  Weight: 63 kg

DRUGS (3)
  1. REMICADE [Suspect]
     Indication: CROHN^S DISEASE
     Route: 042
     Dates: start: 20130815
  2. REMICADE [Suspect]
     Indication: CROHN^S DISEASE
     Route: 042
     Dates: end: 20131113
  3. REMICADE [Suspect]
     Indication: CROHN^S DISEASE
     Route: 042
     Dates: start: 201308

REACTIONS (6)
  - Fistula [Unknown]
  - Crohn^s disease [Unknown]
  - Abdominal distension [Unknown]
  - Asthenia [Unknown]
  - Musculoskeletal disorder [Unknown]
  - Drug ineffective [Unknown]
